FAERS Safety Report 8169952-0 (Version None)
Quarter: 2012Q1

REPORT INFORMATION
  Report Type: 
  Country: None (occurrence: None)
  Receive Date: 20120228
  Receipt Date: 20120228
  Transmission Date: 20120608
  Serious: Yes (Death)
  Sender: FDA-Public Use
  Company Number: None

PATIENT
  Age: 58 Year
  Sex: Male
  Weight: 72.574 kg

DRUGS (1)
  1. DONEPEZIL HCL [Suspect]
     Dosage: UNKNOWN
     Route: 048
     Dates: start: 20120101, end: 20120126

REACTIONS (3)
  - DRUG LEVEL INCREASED [None]
  - SUDDEN DEATH [None]
  - FALL [None]
